FAERS Safety Report 5624397-X (Version None)
Quarter: 2008Q1

REPORT INFORMATION
  Report Type: 
  Country: None (occurrence: None)
  Receive Date: 20080213
  Receipt Date: 20080201
  Transmission Date: 20080703
  Serious: No
  Sender: FDA-Public Use
  Company Number: US-JNJFOC-20080200780

PATIENT
  Sex: Female
  Weight: 102.97 kg

DRUGS (3)
  1. INVEGA [Suspect]
     Indication: DEPRESSION
     Route: 048
  2. LEVOTHYROXINE SODIUM [Concomitant]
     Indication: THYROID DISORDER
     Route: 048
  3. CYMBALTA [Concomitant]
     Indication: DEPRESSION

REACTIONS (1)
  - FEELING COLD [None]
